FAERS Safety Report 8235760-5 (Version None)
Quarter: 2012Q1

REPORT INFORMATION
  Report Type: 
  Country: None (occurrence: None)
  Receive Date: 20120326
  Receipt Date: 20120319
  Transmission Date: 20120608
  Serious: Yes (Other)
  Sender: FDA-Public Use
  Company Number: PHHY2012US024211

PATIENT
  Age: 65 Year
  Sex: Male

DRUGS (1)
  1. EVEROLIMUS [Suspect]
     Indication: RENAL CELL CARCINOMA
     Dosage: 10 MG / DAILY
     Route: 048
     Dates: start: 20100401

REACTIONS (5)
  - HYPERTHYROIDISM [None]
  - BLOOD THYROID STIMULATING HORMONE DECREASED [None]
  - HYPERLIPIDAEMIA [None]
  - RASH [None]
  - THYROXINE FREE INCREASED [None]
